FAERS Safety Report 21601308 (Version 9)
Quarter: 2025Q1

REPORT INFORMATION
  Report Type: Spontaneous
  Country: JP (occurrence: JP)
  Receive Date: 20221116
  Receipt Date: 20250204
  Transmission Date: 20250409
  Serious: Yes (Death, Other)
  Sender: ASTELLAS
  Company Number: JP-ASTELLAS-2022JP010532

PATIENT
  Age: 26 Year
  Sex: Female

DRUGS (27)
  1. XOSPATA [Interacting]
     Active Substance: GILTERITINIB
     Indication: Product used for unknown indication
     Route: 048
  2. XOSPATA [Interacting]
     Active Substance: GILTERITINIB
     Route: 048
     Dates: start: 20220624, end: 202206
  3. XOSPATA [Interacting]
     Active Substance: GILTERITINIB
     Route: 048
     Dates: start: 20220630
  4. XOSPATA [Interacting]
     Active Substance: GILTERITINIB
     Route: 048
  5. XOSPATA [Interacting]
     Active Substance: GILTERITINIB
     Route: 048
  6. XOSPATA [Interacting]
     Active Substance: GILTERITINIB
     Route: 048
     Dates: start: 202211, end: 20221126
  7. XOSPATA [Interacting]
     Active Substance: GILTERITINIB
     Route: 048
     Dates: start: 20221207, end: 202301
  8. XOSPATA [Interacting]
     Active Substance: GILTERITINIB
     Route: 048
     Dates: start: 2023
  9. XOSPATA [Interacting]
     Active Substance: GILTERITINIB
     Route: 048
  10. VENETOCLAX [Suspect]
     Active Substance: VENETOCLAX
     Indication: Product used for unknown indication
     Route: 048
  11. VENETOCLAX [Suspect]
     Active Substance: VENETOCLAX
     Route: 048
  12. VENETOCLAX [Suspect]
     Active Substance: VENETOCLAX
     Route: 048
  13. VENETOCLAX [Suspect]
     Active Substance: VENETOCLAX
     Route: 048
     Dates: start: 2023
  14. VENETOCLAX [Suspect]
     Active Substance: VENETOCLAX
     Route: 048
  15. VENETOCLAX [Suspect]
     Active Substance: VENETOCLAX
     Route: 048
  16. VENETOCLAX [Suspect]
     Active Substance: VENETOCLAX
     Route: 048
  17. ITRACONAZOLE [Interacting]
     Active Substance: ITRACONAZOLE
     Indication: Product used for unknown indication
     Route: 048
  18. ITRACONAZOLE [Interacting]
     Active Substance: ITRACONAZOLE
     Route: 048
  19. ITRACONAZOLE [Interacting]
     Active Substance: ITRACONAZOLE
     Route: 048
  20. ITRACONAZOLE [Interacting]
     Active Substance: ITRACONAZOLE
     Route: 048
  21. PROGRAF [Concomitant]
     Active Substance: TACROLIMUS
     Indication: Product used for unknown indication
     Route: 065
  22. NEORAL [Concomitant]
     Active Substance: CYCLOSPORINE
     Indication: Product used for unknown indication
     Route: 065
  23. NEORAL [Concomitant]
     Active Substance: CYCLOSPORINE
     Route: 065
  24. FLUCONAZOLE [Concomitant]
     Active Substance: FLUCONAZOLE
     Indication: Product used for unknown indication
     Route: 065
  25. AZACITIDINE [Concomitant]
     Active Substance: AZACITIDINE
     Indication: Product used for unknown indication
     Route: 065
  26. AZACITIDINE [Concomitant]
     Active Substance: AZACITIDINE
     Route: 065
  27. AZACITIDINE [Concomitant]
     Active Substance: AZACITIDINE
     Route: 065

REACTIONS (13)
  - WT1 gene mutation [Not Recovered/Not Resolved]
  - Myelosuppression [Unknown]
  - Neutropenia [Unknown]
  - Headache [Not Recovered/Not Resolved]
  - Myalgia [Not Recovered/Not Resolved]
  - Liver disorder [Recovered/Resolved]
  - Stomatitis [Recovered/Resolved]
  - Dehydration [Unknown]
  - Blood pressure decreased [Recovered/Resolved]
  - Disease progression [Fatal]
  - Labelled drug-drug interaction issue [Unknown]
  - Product use issue [Unknown]
  - Off label use [Unknown]

NARRATIVE: CASE EVENT DATE: 20220601
